FAERS Safety Report 12681616 (Version 2)
Quarter: 2016Q4

REPORT INFORMATION
  Report Type: Spontaneous
  Country: JP (occurrence: JP)
  Receive Date: 20160824
  Receipt Date: 20161207
  Transmission Date: 20170207
  Serious: Yes (Other)
  Sender: FDA-Public Use
  Company Number: JP-GILEAD-2016-0223212

PATIENT
  Age: 85 Year
  Sex: Male

DRUGS (9)
  1. OPALMON [Concomitant]
     Active Substance: LIMAPROST
  2. PREDNISOLONE. [Concomitant]
     Active Substance: PREDNISOLONE
  3. MUCOSTA [Concomitant]
     Active Substance: REBAMIPIDE
  4. HARVONI [Suspect]
     Active Substance: LEDIPASVIR\SOFOSBUVIR
     Indication: CHRONIC HEPATITIS C
     Dosage: 1 DF, UNK
     Route: 048
     Dates: start: 20150917, end: 20151209
  5. RHEUMATREX [Concomitant]
     Active Substance: METHOTREXATE SODIUM
  6. HARNAL [Concomitant]
     Active Substance: TAMSULOSIN HYDROCHLORIDE
  7. MORBIC [Concomitant]
  8. GASTER [Concomitant]
     Active Substance: FAMOTIDINE
  9. ONBREZ [Concomitant]
     Active Substance: INDACATEROL

REACTIONS (1)
  - Pneumothorax spontaneous [Recovered/Resolved]

NARRATIVE: CASE EVENT DATE: 20151105
